FAERS Safety Report 17533056 (Version 4)
Quarter: 2020Q4

REPORT INFORMATION
  Report Type: Spontaneous
  Country: US (occurrence: US)
  Receive Date: 20200312
  Receipt Date: 20201222
  Transmission Date: 20210113
  Serious: Yes (Other)
  Sender: FDA-Public Use
  Company Number: US-PFIZER INC-2019346330

PATIENT
  Age: 80 Year
  Sex: Female
  Weight: 66.68 kg

DRUGS (7)
  1. LYRICA [Concomitant]
     Active Substance: PREGABALIN
     Dosage: UNK
  2. ELIQUIS [Concomitant]
     Active Substance: APIXABAN
     Indication: ANTICOAGULANT THERAPY
     Dosage: 2.5 MG, 2X/DAY
  3. PROTONIX [OMEPRAZOLE] [Concomitant]
     Active Substance: OMEPRAZOLE
     Indication: BARRETT^S OESOPHAGUS
     Dosage: 40 MG, 1X/DAY
  4. CELEBREX [Concomitant]
     Active Substance: CELECOXIB
     Indication: RHEUMATOID ARTHRITIS
     Dosage: 200 MG, 1X/DAY
  5. XELJANZ [Suspect]
     Active Substance: TOFACITINIB CITRATE
     Indication: RHEUMATOID ARTHRITIS
     Dosage: 5 MG, 2X/DAY
     Route: 048
  6. ATENOLOL. [Concomitant]
     Active Substance: ATENOLOL
     Indication: ARRHYTHMIA
  7. ATENOLOL. [Concomitant]
     Active Substance: ATENOLOL
     Indication: HYPERTENSION
     Dosage: 50 MG, 1X/DAY

REACTIONS (9)
  - Hypoacusis [Unknown]
  - Cardiac arrest [Unknown]
  - Cataract [Recovered/Resolved]
  - Neuralgia [Unknown]
  - Muscle spasms [Unknown]
  - Malaise [Unknown]
  - Myalgia [Unknown]
  - Heart valve incompetence [Recovered/Resolved]
  - Feeling abnormal [Unknown]
